FAERS Safety Report 7657642-X (Version None)
Quarter: 2011Q3

REPORT INFORMATION
  Report Type: 
  Country: None (occurrence: None)
  Receive Date: 20110804
  Receipt Date: 20110726
  Transmission Date: 20111222
  Serious: Yes (Other)
  Sender: FDA-Public Use
  Company Number: US-ASTRAZENECA-2011SE44803

PATIENT
  Sex: Male

DRUGS (1)
  1. PRILOSEC [Suspect]
     Route: 048

REACTIONS (11)
  - CATARACT [None]
  - GENERAL PHYSICAL HEALTH DETERIORATION [None]
  - SYSTEMIC SCLEROSIS [None]
  - URINARY RETENTION [None]
  - RENAL FAILURE CHRONIC [None]
  - MUSCULAR WEAKNESS [None]
  - PAIN [None]
  - BLOOD CREATININE INCREASED [None]
  - VISION BLURRED [None]
  - MUSCLE SPASMS [None]
  - SPINAL COLUMN STENOSIS [None]
